FAERS Safety Report 7065247-7 (Version None)
Quarter: 2010Q4

REPORT INFORMATION
  Report Type: 
  Country: None (occurrence: None)
  Receive Date: 20101027
  Receipt Date: 20101015
  Transmission Date: 20110411
  Serious: Yes (Hospitalization, Other)
  Sender: FDA-Public Use
  Company Number: FR-KINGPHARMUSA00001-K201001285

PATIENT
  Age: 74 Year
  Sex: Female

DRUGS (9)
  1. ALTACE [Suspect]
     Dosage: 5 MG, QD
     Route: 048
  2. URBANYL [Suspect]
     Indication: PARTIAL SEIZURES
     Dosage: 10 MG, BID
     Route: 048
     Dates: start: 20100821
  3. TEMESTA [Suspect]
     Dosage: 1 MG, QD
     Route: 048
  4. ESIDRIX [Suspect]
     Dosage: 25 MG, QD
     Route: 048
  5. AMLODIPINE [Suspect]
     Dosage: 5 MG, QD
     Route: 048
  6. TEGRETOL [Suspect]
     Indication: PARTIAL SEIZURES
     Dosage: 200 MG, TID
     Route: 048
  7. TAHOR [Concomitant]
     Dosage: 20 MG, QD
  8. KARDEGIC [Concomitant]
     Dosage: 75 MG, QD
  9. STAGID [Concomitant]
     Dosage: 700 MG, BID

REACTIONS (14)
  - ASTHENIA [None]
  - CAROTID ARTERY STENOSIS [None]
  - COGNITIVE DISORDER [None]
  - DRUG INTERACTION [None]
  - FALL [None]
  - FATIGUE [None]
  - LIMB INJURY [None]
  - LIP HAEMATOMA [None]
  - MEMORY IMPAIRMENT [None]
  - MICROCYTIC ANAEMIA [None]
  - MOUTH INJURY [None]
  - ORTHOSTATIC HYPOTENSION [None]
  - PYREXIA [None]
  - VENTRICULAR EXTRASYSTOLES [None]
